FAERS Safety Report 6847587-7 (Version None)
Quarter: 2010Q3

REPORT INFORMATION
  Report Type: 
  Country: None (occurrence: None)
  Receive Date: 20100716
  Receipt Date: 20100706
  Transmission Date: 20110219
  Serious: Yes (Other)
  Sender: FDA-Public Use
  Company Number: CA-JNJFOC-20100603610

PATIENT
  Sex: Male
  Weight: 121 kg

DRUGS (4)
  1. REMICADE [Suspect]
     Indication: ANKYLOSING SPONDYLITIS
     Route: 042
  2. REMICADE [Suspect]
     Route: 042
  3. REMICADE [Suspect]
     Dosage: 21ST INFUSION AND FIRST DOSE OF 400MG
     Route: 042
  4. ATACAND [Concomitant]
     Indication: HYPERTENSION

REACTIONS (1)
  - EPISTAXIS [None]
